FAERS Safety Report 8617399-2 (Version None)
Quarter: 2012Q3

REPORT INFORMATION
  Report Type: 
  Country: None (occurrence: None)
  Receive Date: 20120823
  Receipt Date: 20120817
  Transmission Date: 20120928
  Serious: Yes (Other)
  Sender: FDA-Public Use
  Company Number: PT-MERCK-1208PRT008194

PATIENT

DRUGS (2)
  1. METFORMIN HYDROCHLORIDE/SITAGLIPTIN PHOSPHATE [Suspect]
     Indication: TYPE 2 DIABETES MELLITUS
     Dosage: 50/1000 MG, QD
     Route: 048
     Dates: start: 20120723, end: 20120727
  2. ENALAPRIL MALEATE (+) LERCANIDIPINE HYDROCHLORIDE [Suspect]
     Indication: HYPERTENSION
     Dosage: 20/10MG, QD
     Route: 048
     Dates: start: 20120723, end: 20120727

REACTIONS (3)
  - OEDEMA PERIPHERAL [None]
  - LIP SWELLING [None]
  - MYALGIA [None]
